FAERS Safety Report 21721543 (Version 1)
Quarter: 2022Q4

REPORT INFORMATION
  Report Type: Spontaneous
  Country: FR (occurrence: FR)
  Receive Date: 20221213
  Receipt Date: 20221213
  Transmission Date: 20230113
  Serious: Yes (Hospitalization, Other)
  Sender: FDA-Public Use
  Company Number: None

PATIENT
  Age: 24 Year
  Sex: Male

DRUGS (3)
  1. ACETAZOLAMIDE [Suspect]
     Active Substance: ACETAZOLAMIDE
     Indication: Herpes ophthalmic
     Route: 042
  2. ACETAZOLAMIDE [Suspect]
     Active Substance: ACETAZOLAMIDE
     Route: 048
  3. VALACYCLOVIR [Concomitant]
     Active Substance: VALACYCLOVIR HYDROCHLORIDE

REACTIONS (2)
  - Retinal vascular occlusion [Recovered/Resolved]
  - Retinopathy [Recovered/Resolved]
